FAERS Safety Report 7750142-8 (Version None)
Quarter: 2011Q3

REPORT INFORMATION
  Report Type: 
  Country: None (occurrence: None)
  Receive Date: 20110914
  Receipt Date: 20110912
  Transmission Date: 20111222
  Serious: Yes (Hospitalization)
  Sender: FDA-Public Use
  Company Number: US-PFIZER INC-2011214672

PATIENT
  Sex: Male
  Weight: 89.796 kg

DRUGS (6)
  1. METOPROLOL [Concomitant]
     Dosage: 100 MG, UNK
  2. DOXAZOSIN [Concomitant]
     Dosage: 1 MG, UNK
  3. LISINOPRIL [Concomitant]
     Dosage: 40 MG, UNK
  4. NORVASC [Concomitant]
     Dosage: 10 MG, UNK
  5. SIMVASTATIN [Concomitant]
     Dosage: 40 MG, UNK
  6. TIKOSYN [Suspect]
     Indication: ATRIAL FIBRILLATION
     Dosage: 0.25 MG, 2X/DAY
     Route: 048
     Dates: start: 20080701, end: 20110801

REACTIONS (1)
  - LOSS OF CONSCIOUSNESS [None]
